FAERS Safety Report 18928905 (Version 1)
Quarter: 2021Q1

REPORT INFORMATION
  Report Type: Spontaneous
  Country: ES (occurrence: ES)
  Receive Date: 20210223
  Receipt Date: 20210223
  Transmission Date: 20210420
  Serious: Yes (Other)
  Sender: FDA-Public Use
  Company Number: ES-JNJFOC-20210229461

PATIENT
  Age: 57 Year
  Sex: Male

DRUGS (3)
  1. DUROGESIC [Suspect]
     Active Substance: FENTANYL
     Indication: CANCER PAIN
     Route: 062
     Dates: start: 20201001
  2. DUROGESIC [Suspect]
     Active Substance: FENTANYL
     Route: 062
  3. FENTANYL. [Suspect]
     Active Substance: FENTANYL
     Indication: CANCER PAIN
     Route: 042
     Dates: start: 20201227, end: 20201227

REACTIONS (4)
  - Hypopnoea [Recovered/Resolved]
  - Miosis [Recovered/Resolved]
  - Incorrect dosage administered [Unknown]
  - Stupor [Recovered/Resolved]

NARRATIVE: CASE EVENT DATE: 20201227
